FAERS Safety Report 21475994 (Version 1)
Quarter: 2022Q4

REPORT INFORMATION
  Report Type: Spontaneous
  Country: US (occurrence: None)
  Receive Date: 20221019
  Receipt Date: 20221019
  Transmission Date: 20230113
  Serious: Yes (Death, Other)
  Sender: FDA-Public Use
  Company Number: None

PATIENT
  Age: 64 Year
  Sex: Female

DRUGS (3)
  1. LOSARTAN [Suspect]
     Active Substance: LOSARTAN
     Indication: Overdose
     Dosage: 100 MG
  2. NIFEDIPINE [Suspect]
     Active Substance: NIFEDIPINE
     Indication: Overdose
     Dosage: 90 MG
  3. CARVEDILOL [Suspect]
     Active Substance: CARVEDILOL
     Indication: Overdose
     Dosage: 25 MG

REACTIONS (3)
  - Completed suicide [Fatal]
  - Shock [Fatal]
  - Overdose [Fatal]
